FAERS Safety Report 25731006 (Version 2)
Quarter: 2025Q3

REPORT INFORMATION
  Report Type: Report from Study
  Country: EU (occurrence: EU)
  Receive Date: 20250827
  Receipt Date: 20250908
  Transmission Date: 20251021
  Serious: Yes (Hospitalization)
  Sender: ROCHE
  Company Number: EU-ML39632-2636590-0

PATIENT
  Age: 62 Year
  Sex: Male

DRUGS (22)
  1. OCREVUS [Suspect]
     Active Substance: OCRELIZUMAB
     Indication: Relapsing multiple sclerosis
     Route: 042
     Dates: start: 20180906, end: 20180920
  2. OCREVUS [Suspect]
     Active Substance: OCRELIZUMAB
     Route: 042
     Dates: start: 20190314, end: 20220215
  3. KESIMPTA [Suspect]
     Active Substance: OFATUMUMAB
     Indication: Relapsing multiple sclerosis
     Route: 058
     Dates: start: 20220921
  4. ACETAMINOPHEN [Concomitant]
     Active Substance: ACETAMINOPHEN
     Route: 042
     Dates: start: 20180906, end: 20220215
  5. PREDNISOLONE [Concomitant]
     Active Substance: PREDNISOLONE
     Route: 042
     Dates: start: 20180906, end: 20220215
  6. DALFAMPRIDINE [Concomitant]
     Active Substance: DALFAMPRIDINE
     Route: 048
     Dates: start: 2009
  7. Comirnaty [Concomitant]
     Route: 030
     Dates: start: 20220113, end: 20220113
  8. Comirnaty [Concomitant]
     Route: 030
     Dates: start: 20211216, end: 20211216
  9. PANTOZOL [Concomitant]
     Active Substance: PANTOPRAZOLE SODIUM
     Indication: Gastrointestinal disorder prophylaxis
     Route: 048
     Dates: start: 20180906, end: 20220215
  10. PANTOZOL [Concomitant]
     Active Substance: PANTOPRAZOLE SODIUM
     Route: 048
     Dates: start: 20250526, end: 20250530
  11. PANTOZOL [Concomitant]
     Active Substance: PANTOPRAZOLE SODIUM
     Route: 048
     Dates: start: 20250711
  12. DYSPORT [Concomitant]
     Active Substance: ABOBOTULINUMTOXINA
     Route: 030
     Dates: start: 20220517
  13. DIMETHINDENE MALEATE [Concomitant]
     Active Substance: DIMETHINDENE MALEATE
     Route: 042
     Dates: start: 20180906, end: 20220215
  14. BENSERAZIDE\LEVODOPA [Concomitant]
     Active Substance: BENSERAZIDE\LEVODOPA
     Route: 048
     Dates: start: 20190903
  15. METHYLPREDNISOLONE [Concomitant]
     Active Substance: METHYLPREDNISOLONE
     Route: 042
     Dates: start: 20250526, end: 20250530
  16. ENOXAPARIN SODIUM [Concomitant]
     Active Substance: ENOXAPARIN SODIUM
     Indication: Thrombosis prophylaxis
     Route: 058
     Dates: start: 20250526, end: 20250530
  17. COMIRNATY [Concomitant]
     Route: 030
     Dates: start: 20220113, end: 20220113
  18. COMIRNATY [Concomitant]
     Route: 030
     Dates: start: 20211216, end: 20211216
  19. ATORVASTATIN [Concomitant]
     Active Substance: ATORVASTATIN
     Indication: Dyslipidaemia
     Route: 048
     Dates: start: 20250711
  20. PRASUGREL [Concomitant]
     Active Substance: PRASUGREL
     Route: 048
     Dates: start: 20250711
  21. ASPIRIN [Concomitant]
     Active Substance: ASPIRIN
     Route: 048
     Dates: start: 20250711
  22. AMLODIPINE BESYLATE\PERINDOPRIL ARGININE [Concomitant]
     Active Substance: AMLODIPINE BESYLATE\PERINDOPRIL ARGININE
     Indication: Hypertension
     Route: 048
     Dates: start: 202506, end: 202507

REACTIONS (8)
  - Diabetes mellitus [Not Recovered/Not Resolved]
  - Intestinal perforation [Recovered/Resolved with Sequelae]
  - Pyrexia [Recovered/Resolved]
  - Pain [Recovered/Resolved]
  - Diverticulum intestinal [Not Recovered/Not Resolved]
  - Oral candidiasis [Recovered/Resolved]
  - Hypertension [Not Recovered/Not Resolved]
  - Dehydration [Recovered/Resolved]

NARRATIVE: CASE EVENT DATE: 20250526
